FAERS Safety Report 4391427-5 (Version None)
Quarter: 2004Q3

REPORT INFORMATION
  Report Type: 
  Country: None (occurrence: None)
  Receive Date: 20040707
  Receipt Date: 20030703
  Transmission Date: 20050211
  Serious: Yes (Other)
  Sender: FDA-Public Use
  Company Number: NO-GLAXOSMITHKLINE-B0303785A

PATIENT
  Age: 71 Year
  Sex: Male

DRUGS (8)
  1. REQUIP [Suspect]
     Indication: PARKINSON'S DISEASE
     Dosage: 1MG PER DAY
     Route: 048
     Dates: start: 20030225, end: 20030506
  2. METOPROLOL SUCCINATE [Concomitant]
     Indication: PROPHYLAXIS
     Dosage: 100MG PER DAY
     Route: 065
  3. ALBYL-E [Concomitant]
     Dosage: 160MG PER DAY
     Route: 065
  4. CALCIGRAN FORTE [Concomitant]
     Indication: OSTEOPOROSIS
     Route: 065
  5. ZOCOR [Concomitant]
     Dosage: 20MG PER DAY
     Route: 065
  6. ZESTORETIC [Concomitant]
     Indication: HYPERTENSION
     Route: 065
  7. IMDUR [Concomitant]
     Indication: PAIN
     Dosage: 60MG PER DAY
     Route: 065
  8. SERETIDE [Concomitant]
     Indication: ASTHMA
     Route: 065

REACTIONS (3)
  - FATIGUE [None]
  - SLEEP ATTACKS [None]
  - SOMNOLENCE [None]
